FAERS Safety Report 10448335 (Version 2)
Quarter: 2014Q3

REPORT INFORMATION
  Report Type: Spontaneous
  Country: AU (occurrence: AU)
  Receive Date: 20140911
  Receipt Date: 20140912
  Transmission Date: 20150326
  Serious: Yes (Life-Threatening, Other)
  Sender: FDA-Public Use
  Company Number: AU-ROCHE-1457569

PATIENT
  Age: 67 Year
  Sex: Male

DRUGS (4)
  1. FLUOROURACIL. [Suspect]
     Active Substance: FLUOROURACIL
     Indication: RECTAL ADENOCARCINOMA
     Route: 065
  2. XELODA [Suspect]
     Active Substance: CAPECITABINE
     Indication: RECTAL ADENOCARCINOMA
     Route: 065
     Dates: start: 2013
  3. AVASTIN [Suspect]
     Active Substance: BEVACIZUMAB
     Indication: RECTAL ADENOCARCINOMA
     Route: 065
     Dates: start: 2013
  4. OXALIPLATIN. [Suspect]
     Active Substance: OXALIPLATIN
     Indication: RECTAL ADENOCARCINOMA
     Route: 065
     Dates: start: 2013

REACTIONS (12)
  - Hiccups [Unknown]
  - Metastases to adrenals [Unknown]
  - Dry mouth [Unknown]
  - Diarrhoea [Unknown]
  - Hypophagia [Unknown]
  - Oral pain [Unknown]
  - Gastrooesophageal reflux disease [Unknown]
  - Clostridium difficile infection [Unknown]
  - Abdominal pain upper [Unknown]
  - Fatigue [Unknown]
  - Weight decreased [Unknown]
  - Colitis [Unknown]

NARRATIVE: CASE EVENT DATE: 201306
